FAERS Safety Report 8508302-4 (Version None)
Quarter: 2012Q2

REPORT INFORMATION
  Report Type: 
  Country: None (occurrence: None)
  Receive Date: 20120405
  Receipt Date: 20090202
  Transmission Date: 20120825
  Serious: Yes (Other)
  Sender: FDA-Public Use
  Company Number: PHEH2009US01368

PATIENT
  Age: 76 Year
  Sex: Female
  Weight: 60.8 kg

DRUGS (3)
  1. RECLAST [Suspect]
     Dosage: ONCE A MONTH, INFUSION
     Dates: start: 20080901
  2. VITAMIN D [Concomitant]
  3. ESTER-C (CALCIUM ASCORBATE) [Concomitant]

REACTIONS (3)
  - FEELING COLD [None]
  - ANAEMIA [None]
  - MUSCULOSKELETAL STIFFNESS [None]
